FAERS Safety Report 12570493 (Version 1)
Quarter: 2016Q3

REPORT INFORMATION
  Report Type: Report from Study
  Country: AE (occurrence: AE)
  Receive Date: 20160719
  Receipt Date: 20160719
  Transmission Date: 20161109
  Serious: Yes (Hospitalization)
  Sender: FDA-Public Use
  Company Number: AE-KADMON PHARMACEUTICALS, LLC-KAD201607-002575

PATIENT
  Age: 49 Year
  Sex: Female

DRUGS (3)
  1. VIEKIRAX [Suspect]
     Active Substance: OMBITASVIR\PARITAPREVIR\RITONAVIR
     Indication: HEPATITIS C
     Route: 048
     Dates: start: 20160524, end: 20160623
  2. RIBAVIRIN 600 MG [Suspect]
     Active Substance: RIBAVIRIN
     Indication: HEPATITIS C
     Route: 048
     Dates: start: 20160524, end: 20160623
  3. REBETOL 200 MG [Concomitant]
     Indication: HEPATITIS C
     Route: 048
     Dates: start: 20160524, end: 20160623

REACTIONS (3)
  - Pain in extremity [Recovered/Resolved]
  - Ascites [Recovered/Resolved]
  - Back pain [Recovered/Resolved]

NARRATIVE: CASE EVENT DATE: 20160622
